FAERS Safety Report 24744492 (Version 2)
Quarter: 2024Q4

REPORT INFORMATION
  Report Type: Report from Study
  Country: US (occurrence: US)
  Receive Date: 20241217
  Receipt Date: 20241220
  Transmission Date: 20250115
  Serious: No
  Sender: IPSEN BIOPHARMACEUTICALS, INC.
  Company Number: US-IPSEN Group, Research and Development-2024-21923

PATIENT
  Age: 70 Year
  Sex: Female

DRUGS (4)
  1. BYLVAY [Suspect]
     Active Substance: ODEVIXIBAT
     Indication: Pruritus
     Route: 048
  2. BYLVAY [Suspect]
     Active Substance: ODEVIXIBAT
     Indication: Off label use
     Dosage: 400 MCG FOUR TIMES A WEEK
     Route: 048
     Dates: start: 20240923
  3. BYLVAY [Suspect]
     Active Substance: ODEVIXIBAT
     Dosage: THREE 400 MCG ORAL CAPSULES BY MOUTH ONCE DAILY WITH A MEAL.
     Route: 048
     Dates: start: 20241004
  4. ABILIFY [Concomitant]
     Active Substance: ARIPIPRAZOLE

REACTIONS (3)
  - Gastrointestinal disorder [Unknown]
  - Diarrhoea [Unknown]
  - Off label use [Unknown]

NARRATIVE: CASE EVENT DATE: 20241004
